FAERS Safety Report 7620259-7 (Version None)
Quarter: 2011Q3

REPORT INFORMATION
  Report Type: 
  Country: None (occurrence: None)
  Receive Date: 20110719
  Receipt Date: 20110708
  Transmission Date: 20111222
  Serious: Yes (Other)
  Sender: FDA-Public Use
  Company Number: PHHY2011JP45555

PATIENT
  Sex: Female

DRUGS (1)
  1. ZOMETA [Suspect]
     Indication: METASTASES TO BONE
     Dosage: UNK UKN, UNK
     Route: 041
     Dates: start: 20070301, end: 20080201

REACTIONS (4)
  - EXPOSED BONE IN JAW [None]
  - PERIODONTITIS [None]
  - PAIN [None]
  - OSTEONECROSIS OF JAW [None]
